FAERS Safety Report 7346987-9 (Version None)
Quarter: 2011Q1

REPORT INFORMATION
  Report Type: 
  Country: None (occurrence: None)
  Receive Date: 20110311
  Receipt Date: 20110211
  Transmission Date: 20110831
  Serious: No
  Sender: FDA-Public Use
  Company Number: US-B.I. PHARMACEUTICALS,INC./RIDGEFIELD-2010-BP-15241BP

PATIENT
  Sex: Male

DRUGS (6)
  1. PLAVIX [Concomitant]
     Indication: THROMBOSIS
     Dosage: 75 MG
     Route: 048
     Dates: start: 20080101
  2. AMBIEN [Concomitant]
     Indication: SLEEP DISORDER
     Dosage: 1 MG
     Route: 048
     Dates: start: 20080101
  3. PRADAXA [Suspect]
     Indication: ATRIAL FIBRILLATION
  4. DIOVAN [Concomitant]
     Indication: HYPERTENSION
     Dosage: 160 MG
     Route: 048
     Dates: start: 20080101
  5. PROVASTATIN/PROVACHOL [Concomitant]
     Indication: BLOOD CHOLESTEROL INCREASED
     Dosage: 80 MG
     Route: 048
     Dates: start: 20080101
  6. PRADAXA [Suspect]
     Indication: THROMBOSIS
     Dosage: 300 MG
     Route: 048
     Dates: start: 20101215, end: 20110214

REACTIONS (6)
  - DYSPEPSIA [None]
  - ABDOMINAL DISCOMFORT [None]
  - EPISTAXIS [None]
  - HEADACHE [None]
  - GASTRITIS [None]
  - ABDOMINAL PAIN UPPER [None]
